FAERS Safety Report 22598308 (Version 1)
Quarter: 2023Q2

REPORT INFORMATION
  Report Type: Spontaneous
  Country: CN (occurrence: None)
  Receive Date: 20230614
  Receipt Date: 20230614
  Transmission Date: 20230722
  Serious: Yes (Other)
  Sender: FDA-Public Use
  Company Number: CN-ROCHE-3365750

PATIENT
  Age: 53 Year
  Sex: Female
  Weight: 83 kg

DRUGS (1)
  1. MABTHERA [Suspect]
     Active Substance: RITUXIMAB
     Indication: Neuromyelitis optica spectrum disorder
     Dosage: FORM OF ADMIN TEXT : INJECTION
     Route: 041
     Dates: start: 20230529

REACTIONS (3)
  - CD19 lymphocytes decreased [Unknown]
  - T-lymphocyte count increased [Unknown]
  - Off label use [Unknown]

NARRATIVE: CASE EVENT DATE: 20230529
